FAERS Safety Report 9623935 (Version 1)
Quarter: 2013Q4

REPORT INFORMATION
  Report Type: Spontaneous
  Country: US (occurrence: US)
  Receive Date: 20131015
  Receipt Date: 20131015
  Transmission Date: 20140711
  Serious: No
  Sender: FDA-Public Use
  Company Number: US-BAUSCH-BL-2012-001041

PATIENT
  Age: 65 Year
  Sex: Male

DRUGS (1)
  1. NEOMYCIN AND POLYMYXIN B SULFATES AND HYDROCORTISONE OTIC SUSPENSION U [Suspect]
     Indication: EAR INFECTION
     Dosage: 2 DROPS IN RIGHT EAR, THREE TIMES PER DAY
     Route: 001
     Dates: start: 20120802, end: 20120811

REACTIONS (3)
  - Tinnitus [Recovered/Resolved]
  - Ear discomfort [Recovered/Resolved]
  - Ear disorder [Not Recovered/Not Resolved]
